FAERS Safety Report 17773048 (Version 1)
Quarter: 2020Q2

REPORT INFORMATION
  Report Type: Report from Study
  Country: None (occurrence: US)
  Receive Date: 20200512
  Receipt Date: 20200512
  Transmission Date: 20200714
  Serious: Yes (Hospitalization, Other)
  Sender: FDA-Public Use
  Company Number: US-ABBVIE-19K-163-2853127-00

PATIENT
  Sex: Male

DRUGS (3)
  1. HUMIRA [Suspect]
     Active Substance: ADALIMUMAB
     Indication: ANKYLOSING SPONDYLITIS
     Route: 058
     Dates: start: 20190501, end: 2019
  2. HUMIRA [Suspect]
     Active Substance: ADALIMUMAB
     Route: 058
     Dates: start: 2019, end: 201911
  3. HUMIRA [Suspect]
     Active Substance: ADALIMUMAB
     Route: 058
     Dates: start: 2019, end: 20200301

REACTIONS (18)
  - Mental status changes [Not Recovered/Not Resolved]
  - Photophobia [Unknown]
  - Arthralgia [Recovering/Resolving]
  - Joint range of motion decreased [Recovering/Resolving]
  - Mobility decreased [Recovering/Resolving]
  - Sinusitis [Not Recovered/Not Resolved]
  - Sluggishness [Unknown]
  - Poor quality sleep [Unknown]
  - Pain [Recovering/Resolving]
  - Fistula [Unknown]
  - Musculoskeletal stiffness [Recovering/Resolving]
  - Skin wound [Unknown]
  - Joint swelling [Unknown]
  - Loss of personal independence in daily activities [Unknown]
  - Nasopharyngitis [Unknown]
  - Fatigue [Recovering/Resolving]
  - General physical condition abnormal [Recovering/Resolving]
  - Swelling [Unknown]

NARRATIVE: CASE EVENT DATE: 2019
